FAERS Safety Report 13012044 (Version 1)
Quarter: 2016Q4

REPORT INFORMATION
  Report Type: Spontaneous
  Country: US (occurrence: US)
  Receive Date: 20161209
  Receipt Date: 20161209
  Transmission Date: 20170207
  Serious: Yes (Other)
  Sender: FDA-Public Use
  Company Number: US-AMGEN-USASP2016172550

PATIENT
  Age: 48 Year
  Sex: Female

DRUGS (2)
  1. ENBREL [Suspect]
     Active Substance: ETANERCEPT
     Indication: PSORIASIS
     Dosage: 50 MG, QWK
     Route: 065
     Dates: start: 200911, end: 201611
  2. RAPTIVA [Concomitant]
     Active Substance: EFALIZUMAB
     Dosage: UNK

REACTIONS (2)
  - Granuloma [Unknown]
  - Blastomycosis [Unknown]
